FAERS Safety Report 6720664 (Version 1)
Quarter: 2020Q3

REPORT INFORMATION
  Report Type: Report from Study
  Country: US (occurrence: US)
  Receive Date: 20080807
  Receipt Date: 20080807
  Transmission Date: 20201104
  Serious: Yes (Hospitalization, Other)
  Sender: FDA-Public Use
  Company Number: US-ROCHE-578609

PATIENT
  Age: 86 Year
  Sex: Female

DRUGS (1)
  1. IBANDRONIC ACID. [Suspect]
     Active Substance: IBANDRONIC ACID
     Indication: OSTEOPENIA
     Route: 065
     Dates: end: 20080701

REACTIONS (3)
  - Fall [None]
  - Renal impairment [Unknown]
  - Hip fracture [Unknown]

NARRATIVE: CASE EVENT DATE: 20080301
